FAERS Safety Report 7276568-7 (Version None)
Quarter: 2011Q1

REPORT INFORMATION
  Report Type: 
  Country: None (occurrence: None)
  Receive Date: 20110204
  Receipt Date: 20110128
  Transmission Date: 20110831
  Serious: Yes (Hospitalization, Other)
  Sender: FDA-Public Use
  Company Number: US-CEPHALON-2011000479

PATIENT
  Sex: Male
  Weight: 53 kg

DRUGS (18)
  1. AMLODIPINE [Concomitant]
     Dates: start: 20070101
  2. LEXAPRO [Concomitant]
     Dates: start: 20070101
  3. NITROFURANTOIN [Concomitant]
     Dates: start: 20090101
  4. ASPIRIN [Concomitant]
     Dates: start: 20070101
  5. LEVOTHYROXINE [Concomitant]
     Dates: start: 20070101
  6. MIRALAX [Concomitant]
     Dates: start: 20070101
  7. SYSTINE [Concomitant]
     Dates: start: 20070101
  8. MULTI-VITAMIN [Concomitant]
     Dates: start: 20070101
  9. PANTROPAZOLE [Concomitant]
     Dates: start: 20070101
  10. TAMSULOSIN HCL [Concomitant]
     Dates: start: 20070101
  11. BACLOFEN [Concomitant]
     Dates: start: 20070101
  12. HALDOL [Concomitant]
     Dates: start: 20070101
  13. NAMENDA [Concomitant]
     Dates: start: 20070101
  14. COSOPT [Concomitant]
     Dates: start: 20070801
  15. GEODON [Concomitant]
     Dates: start: 20070101
  16. PROVIGIL [Suspect]
     Indication: TRAUMATIC BRAIN INJURY
     Route: 048
     Dates: start: 20071001
  17. HYDROCODONE BITARTRATE + ACETAMINOPHEN [Concomitant]
     Dates: start: 20070101
  18. CALCIUM [Concomitant]
     Dates: start: 20070101

REACTIONS (17)
  - HYPERHIDROSIS [None]
  - WEIGHT DECREASED [None]
  - MOOD SWINGS [None]
  - DYSPHAGIA [None]
  - AGITATION [None]
  - CEREBROVASCULAR ACCIDENT [None]
  - DISORIENTATION [None]
  - WHITE BLOOD CELL COUNT DECREASED [None]
  - NASAL CONGESTION [None]
  - ANXIETY [None]
  - HEART RATE IRREGULAR [None]
  - AGGRESSION [None]
  - CONSTIPATION [None]
  - BACK PAIN [None]
  - HYPOTONIA [None]
  - PAIN IN EXTREMITY [None]
  - BLOOD PRESSURE FLUCTUATION [None]
